FAERS Safety Report 21996831 (Version 1)
Quarter: 2023Q1

REPORT INFORMATION
  Report Type: Spontaneous
  Country: SE (occurrence: SE)
  Receive Date: 20230215
  Receipt Date: 20230215
  Transmission Date: 20230418
  Serious: Yes (Other)
  Sender: FDA-Public Use
  Company Number: SE-ANIPHARMA-2023-SE-000007

PATIENT
  Age: 47 Year
  Sex: Female

DRUGS (1)
  1. CANDESARTAN CILEXETIL [Suspect]
     Active Substance: CANDESARTAN CILEXETIL
     Indication: Headache
     Route: 065

REACTIONS (5)
  - Syncope [Recovered/Resolved]
  - Dizziness [Recovered/Resolved]
  - Eye discharge [Recovered/Resolved]
  - Product use in unapproved indication [Recovered/Resolved]
  - Rhinorrhoea [Recovered/Resolved]
